FAERS Safety Report 22330746 (Version 3)
Quarter: 2023Q2

REPORT INFORMATION
  Report Type: Report from Study
  Country: CN (occurrence: None)
  Receive Date: 20230517
  Receipt Date: 20230609
  Transmission Date: 20230722
  Serious: Yes (Hospitalization)
  Sender: FDA-Public Use
  Company Number: CN-ROCHE-3348726

PATIENT
  Age: 59 Year
  Sex: Female
  Weight: 57 kg

DRUGS (5)
  1. TRASTUZUMAB [Suspect]
     Active Substance: TRASTUZUMAB
     Indication: Breast cancer metastatic
     Dosage: 05/MAY/2023 (LAST DOSE PRIOR TO EVENT ONSET), HE RECEIVED OF TRASTUZUMAB AT UNSPECIFIED DOSE AND COM
     Route: 042
     Dates: start: 20230413
  2. PERTUZUMAB [Suspect]
     Active Substance: PERTUZUMAB
     Indication: Breast cancer metastatic
     Dosage: HE RECEIVED 2 DOSES OF PERTUZUMAB AND COMPLETED C2D1.
     Route: 042
     Dates: start: 20230413, end: 20230505
  3. TUCATINIB [Suspect]
     Active Substance: TUCATINIB
     Indication: Breast cancer metastatic
     Dosage: TOTAL NUMBER OF DOSES RECEIVED UNSPECIFIED, AND COMPLETED CYCLE (C)2 DAY (D) 2.
     Route: 048
     Dates: start: 20230413, end: 20230506
  4. AMMONIUM GLYCYRRHIZATE\CYSTEINE HYDROCHLORIDE\GLYCINE [Concomitant]
     Active Substance: AMMONIUM GLYCYRRHIZATE\CYSTEINE HYDROCHLORIDE\GLYCINE
  5. GLUTATHIONE REDUCED [Concomitant]
     Dates: start: 20230504

REACTIONS (1)
  - Liver injury [Recovered/Resolved]

NARRATIVE: CASE EVENT DATE: 20230506
